FAERS Safety Report 9032107 (Version 1)
Quarter: 2013Q1

REPORT INFORMATION
  Report Type: Spontaneous
  Country: US (occurrence: US)
  Receive Date: 20130122
  Receipt Date: 20130122
  Transmission Date: 20140127
  Serious: Yes (Hospitalization)
  Sender: FDA-Public Use
  Company Number: US-BAYER-2013-007408

PATIENT
  Age: 28 Year
  Sex: Female

DRUGS (11)
  1. YASMIN [Suspect]
  2. FLEXERIL [Concomitant]
     Indication: PAIN
     Dosage: 10 MG Q HS
     Route: 048
     Dates: start: 200703
  3. VICODIN [Concomitant]
     Indication: PAIN
  4. ZITHROMAX [Concomitant]
  5. ROCEPHIN [Concomitant]
  6. DILAUDID [Concomitant]
     Indication: PAIN
  7. ORAL CONTRACEPTIVE NOS [Concomitant]
  8. SERTRALINE HYDROCHLORIDE [Concomitant]
     Dosage: 50 MG, UNK
     Route: 048
     Dates: start: 20061213
  9. METHYLPREDNISOLONE [Concomitant]
     Dosage: 4 MG, UNK
     Route: 048
     Dates: start: 20070223
  10. HYDROCODONE W/APAP [Concomitant]
     Dosage: UNK UNK, PRN
     Route: 048
     Dates: start: 20070301
  11. CYCLOBENZAPRINE [Concomitant]
     Dosage: 10 MG, UNK
     Route: 048
     Dates: start: 20070301

REACTIONS (1)
  - Pulmonary embolism [Recovered/Resolved]
